FAERS Safety Report 7195170 (Version 2)
Quarter: 2012Q4

REPORT INFORMATION
  Report Type: 
  Country: CA (occurrence: CA)
  Receive Date: 20091201
  Receipt Date: 20121003
  Transmission Date: 20130627
  Serious: Yes (Life-Threatening, Hospitalization)
  Sender: FDA-Public Use
  Company Number: CA-ROCHE-670603

PATIENT
  Age: 53 Year
  Sex: Male
  Weight: 110 kg

DRUGS (17)
  1. TAMIFLU [Suspect]
     Indication: H1N1 INFLUENZA
     Route: 048
     Dates: start: 20091106, end: 20091116
  2. TAMIFLU [Suspect]
     Route: 048
     Dates: start: 20091116, end: 20091120
  3. TAMIFLU [Suspect]
     Route: 048
  4. PANTOPRAZOLE [Concomitant]
     Indication: HAEMATEMESIS
     Route: 042
  5. PIPERACILLIN/TAZOBACTAM [Concomitant]
     Route: 042
  6. FLUCONAZOLE [Concomitant]
     Route: 042
  7. VANCOMYCIN [Concomitant]
     Route: 042
  8. VANCOMYCIN [Concomitant]
     Route: 042
  9. VASOPRESSIN [Concomitant]
     Route: 042
  10. PHENYLEPHRINE [Concomitant]
  11. HEPARIN [Concomitant]
     Route: 042
  12. NOREPINEPHRINE [Concomitant]
  13. MIDAZOLAM [Concomitant]
     Route: 030
  14. FUROSEMIDE [Concomitant]
  15. FENTANYL [Concomitant]
  16. DOBUTAMINE [Concomitant]
     Route: 041
  17. AMIODARONE [Concomitant]

REACTIONS (4)
  - Upper respiratory tract infection [Not Recovered/Not Resolved]
  - Acute respiratory distress syndrome [Not Recovered/Not Resolved]
  - Condition aggravated [Not Recovered/Not Resolved]
  - Drug ineffective [Unknown]
